FAERS Safety Report 22029546 (Version 1)
Quarter: 2023Q1

REPORT INFORMATION
  Report Type: Spontaneous
  Country: US (occurrence: None)
  Receive Date: 20230221
  Receipt Date: 20230221
  Transmission Date: 20230418
  Serious: Yes (Death)
  Sender: FDA-Public Use
  Company Number: None

PATIENT
  Age: 82 Year
  Sex: Female
  Weight: 55.8 kg

DRUGS (15)
  1. REVLIMID [Suspect]
     Active Substance: LENALIDOMIDE
     Indication: Myelodysplastic syndrome
     Dosage: FREQUENCY : DAILY;?
     Route: 048
     Dates: start: 20210716, end: 20230218
  2. aspirin 81 mg tablet,delayed release [Concomitant]
  3. CEFUROXIME AXETIL [Concomitant]
     Active Substance: CEFUROXIME AXETIL
  4. cyanocobalamin (vit B-12) 1,000 mcg tablet [Concomitant]
  5. divalproex 125 mg tablet,delayed release [Concomitant]
  6. duloxetine 60 mg capsule,delayed release [Concomitant]
  7. iron 325 mg (65 mg iron) tablet [Concomitant]
  8. levothyroxine 25 mcg tablet [Concomitant]
  9. LISINOPRIL [Concomitant]
     Active Substance: LISINOPRIL
  10. Lokelma 10 gram oral powder packet [Concomitant]
  11. pantoprazole 40 mg tablet,delayed release [Concomitant]
  12. SERTRALINE [Concomitant]
     Active Substance: SERTRALINE HYDROCHLORIDE
  13. SIMVASTATIN [Concomitant]
     Active Substance: SIMVASTATIN
  14. sodium polystyrene sulfonate 15 gram-sorbitol 20 gram/60 mL oral susp [Concomitant]
  15. Vitamin D3 125 mcg (5,000 unit) tablet [Concomitant]

REACTIONS (1)
  - Death [None]

NARRATIVE: CASE EVENT DATE: 20230218
